FAERS Safety Report 10039480 (Version 2)
Quarter: 2014Q2

REPORT INFORMATION
  Report Type: Spontaneous
  Country: FR (occurrence: FR)
  Receive Date: 20140326
  Receipt Date: 20140512
  Transmission Date: 20141212
  Serious: Yes (Death)
  Sender: FDA-Public Use
  Company Number: FR-JNJFOC-20140311555

PATIENT
  Age: 66 Year
  Sex: Male

DRUGS (7)
  1. XARELTO [Suspect]
     Indication: EMBOLISM VENOUS
     Route: 048
     Dates: start: 20130620
  2. XARELTO [Suspect]
     Indication: PULMONARY EMBOLISM
     Route: 048
     Dates: start: 20130620
  3. KARDEGIC [Suspect]
     Indication: PRODUCT USED FOR UNKNOWN INDICATION
     Route: 065
  4. FORADIL [Concomitant]
     Route: 065
  5. TRENTADIL [Concomitant]
     Route: 065
  6. QVAR [Concomitant]
     Route: 065
  7. TAHOR [Concomitant]
     Route: 065

REACTIONS (3)
  - Shock haemorrhagic [Fatal]
  - Anaemia [Fatal]
  - Upper gastrointestinal haemorrhage [Fatal]
